FAERS Safety Report 7643969-4 (Version None)
Quarter: 2011Q3

REPORT INFORMATION
  Report Type: 
  Country: None (occurrence: None)
  Receive Date: 20110729
  Receipt Date: 20100915
  Transmission Date: 20111222
  Serious: No
  Sender: FDA-Public Use
  Company Number: US-GLAXOSMITHKLINE-A0882403A

PATIENT
  Age: 65 Year
  Sex: Male

DRUGS (1)
  1. ZANTAC [Suspect]
     Indication: PRODUCT USED FOR UNKNOWN INDICATION
     Dosage: 150MG TWICE PER DAY
     Route: 048
     Dates: start: 20090101

REACTIONS (2)
  - GALLBLADDER DISORDER [None]
  - CHOLECYSTECTOMY [None]
